FAERS Safety Report 5364056-4 (Version None)
Quarter: 2007Q2

REPORT INFORMATION
  Report Type: 
  Country: None (occurrence: None)
  Receive Date: 20070620
  Receipt Date: 20070611
  Transmission Date: 20071010
  Serious: Yes (Hospitalization)
  Sender: FDA-Public Use
  Company Number: JP-ASTRAZENECA-2007SE03145

PATIENT
  Age: 19210 Day
  Sex: Male
  Weight: 63 kg

DRUGS (8)
  1. BLOPRESS TABLETS 8 [Suspect]
     Indication: HYPERTENSION
     Route: 048
     Dates: start: 20070522, end: 20070523
  2. TAKEPRON [Concomitant]
     Route: 048
     Dates: start: 20061230
  3. ZESULAN [Concomitant]
     Route: 048
     Dates: start: 20070514
  4. DIART [Concomitant]
     Route: 048
     Dates: start: 20061230
  5. URSO 250 [Concomitant]
     Route: 048
     Dates: start: 20061230
  6. NEOPHAGEN C [Concomitant]
     Route: 048
     Dates: start: 20061230
  7. FLIVAS [Concomitant]
     Route: 048
     Dates: start: 20061230
  8. UBRETID [Concomitant]
     Route: 048
     Dates: start: 20061230

REACTIONS (2)
  - LIP SWELLING [None]
  - TOXIC SKIN ERUPTION [None]
